FAERS Safety Report 8883311 (Version 3)
Quarter: 2012Q4

REPORT INFORMATION
  Report Type: 
  Country: TW (occurrence: TW)
  Receive Date: 20121102
  Receipt Date: 20121119
  Transmission Date: 20130627
  Serious: Yes (Hospitalization)
  Sender: FDA-Public Use
  Company Number: TW-PFIZER INC-2012271014

PATIENT
  Age: 39 Year
  Sex: Male
  Weight: 75.4 kg

DRUGS (4)
  1. ENBREL [Suspect]
     Indication: ANKYLOSING SPONDYLITIS
     Dosage: 25 mg, 2x/week
     Route: 058
     Dates: start: 20120606, end: 20120923
  2. METHYLPREDNISOLONE ACETATE [Suspect]
     Dosage: 750mg x 3 days
  3. METHOTREXATE [Concomitant]
     Indication: ANKYLOSING SPONDYLITIS
     Dosage: 5 mg, weekly
  4. SALAZOPYRIN [Concomitant]
     Indication: ANKYLOSING SPONDYLITIS
     Dosage: 500 mg, 3x/day

REACTIONS (1)
  - Iritis [Recovering/Resolving]
